FAERS Safety Report 21464237 (Version 2)
Quarter: 2022Q4

REPORT INFORMATION
  Report Type: Report from Study
  Country: US (occurrence: US)
  Receive Date: 20221017
  Receipt Date: 20221104
  Transmission Date: 20230112
  Serious: Yes (Hospitalization)
  Sender: FDA-Public Use
  Company Number: US-TAKEDA-2022TUS073650

PATIENT
  Sex: Female
  Weight: 64 kg

DRUGS (1)
  1. MARIBAVIR [Suspect]
     Active Substance: MARIBAVIR
     Indication: Cytomegalovirus infection
     Dosage: 2 DOSAGE FORM, BID
     Route: 065
     Dates: start: 20221013

REACTIONS (4)
  - Fungal infection [Unknown]
  - Bacterial infection [Unknown]
  - Nausea [Unknown]
  - Ageusia [Unknown]
